FAERS Safety Report 6252283-3 (Version None)
Quarter: 2009Q3

REPORT INFORMATION
  Report Type: 
  Country: None (occurrence: None)
  Receive Date: 20090701
  Receipt Date: 20090622
  Transmission Date: 20100115
  Serious: Yes (Hospitalization, Other)
  Sender: FDA-Public Use
  Company Number: US-ASTRAZENECA-2009UW12526

PATIENT
  Age: 12673 Day
  Sex: Female
  Weight: 61.2 kg

DRUGS (10)
  1. ACCOLATE [Suspect]
     Indication: CAPSULAR CONTRACTURE ASSOCIATED WITH BREAST IMPLANT
     Route: 048
     Dates: start: 20060817, end: 20070217
  2. LEXAPRO [Concomitant]
     Indication: ANXIETY
     Route: 048
  3. LEXAPRO [Concomitant]
     Indication: RECONCILIATION WITH PARTNER
     Route: 048
  4. DEPO-PROVERA [Concomitant]
     Indication: CONTRACEPTION
  5. DEPO-MEDROL [Concomitant]
     Indication: CONTRACEPTION
     Dates: start: 20060123
  6. VITAMIN E [Concomitant]
     Dates: start: 20061101
  7. LEVAQUIN [Concomitant]
     Indication: URINARY TRACT INFECTION
     Dosage: 500 MG TABLET 1/2 TABLET PO QD
     Dates: start: 20070222, end: 20070225
  8. ACIPHEX [Concomitant]
     Dates: start: 20070222
  9. PHENERGAN [Concomitant]
     Dosage: 25 MG TABLET 1/2 TAB Q4-6 HRS
     Route: 048
     Dates: start: 20070222
  10. AMBIEN CR [Concomitant]
     Dates: start: 20070322

REACTIONS (8)
  - ABDOMINAL PAIN [None]
  - ACUTE HEPATIC FAILURE [None]
  - FATIGUE [None]
  - HEPATITIS ACUTE [None]
  - JAUNDICE [None]
  - LIVER TRANSPLANT [None]
  - NAUSEA [None]
  - URINARY TRACT INFECTION [None]
